FAERS Safety Report 9046450 (Version 1)
Quarter: 2013Q1

REPORT INFORMATION
  Report Type: Report from Study
  Country: US (occurrence: US)
  Receive Date: 20130130
  Receipt Date: 20130130
  Transmission Date: 20140127
  Serious: No
  Sender: FDA-Public Use
  Company Number: US-ABBOTT-12P-163-0960511-00

PATIENT
  Age: 52 Year
  Sex: Female

DRUGS (15)
  1. HUMIRA 40 MG/0.8 ML PEN [Suspect]
     Indication: CROHN^S DISEASE
     Dosage: 160 MG LOADING DOSE
     Dates: start: 20120606, end: 20120606
  2. HUMIRA 40 MG/0.8 ML PEN [Suspect]
     Dosage: 80 MG LOADING DOSE
     Dates: start: 20120620, end: 20120620
  3. HUMIRA 40 MG/0.8 ML PEN [Suspect]
  4. ASACOL [Concomitant]
     Indication: CROHN^S DISEASE
  5. OMEPRAZOLE [Concomitant]
     Indication: CROHN^S DISEASE
  6. RANITIDINE [Concomitant]
     Indication: CROHN^S DISEASE
  7. FLUOXETINE [Concomitant]
     Indication: DEPRESSION
     Dosage: THREE CAPSULES IN THE THE MORNING
  8. KLONOPIN [Concomitant]
     Indication: ANXIETY
  9. SEROQUEL [Concomitant]
     Indication: DEPRESSION
  10. SYMBICORT [Concomitant]
     Indication: BRONCHITIS
     Dosage: 80/4.5MG 2 PUFF DAILY
  11. BECONASE [Concomitant]
     Indication: SINUS CONGESTION
     Dosage: 50 MG TWO SPRAYS EACH NOSTRIL DAILY
  12. GABAPENTIN [Concomitant]
     Indication: ARTHRALGIA
  13. VITAMIN B12 [Concomitant]
     Indication: PRODUCT USED FOR UNKNOWN INDICATION
     Dosage: MONTHLY
     Route: 058
  14. PERCOCET [Concomitant]
     Indication: PAIN
     Dosage: ONE TABLET EVERY SIX HOURS AS NEEDED
  15. PHENERGAN [Concomitant]
     Indication: NAUSEA
     Dosage: 1 TABLET AS NEEDED EVERY 4 HOURS

REACTIONS (4)
  - Injection site bruising [Unknown]
  - Injection site pain [Unknown]
  - Headache [Recovered/Resolved]
  - Pain in extremity [Recovered/Resolved]
